FAERS Safety Report 7589626-4 (Version None)
Quarter: 2011Q3

REPORT INFORMATION
  Report Type: 
  Country: None (occurrence: None)
  Receive Date: 20110705
  Receipt Date: 20110628
  Transmission Date: 20111222
  Serious: Yes (Life-Threatening)
  Sender: FDA-Public Use
  Company Number: IT-PFIZER INC-2011145967

PATIENT
  Age: 74 Year
  Sex: Male

DRUGS (2)
  1. PIPERACILLIN AND TAZOBACTAM [Suspect]
     Indication: CITROBACTER INFECTION
     Dosage: 3 G DAILY
     Route: 042
     Dates: start: 20110613, end: 20110620
  2. AUGMENTIN '125' [Suspect]
     Indication: CITROBACTER INFECTION
     Dosage: 2 G, DAILY
     Route: 048
     Dates: start: 20110609, end: 20110613

REACTIONS (2)
  - UROSEPSIS [None]
  - STEVENS-JOHNSON SYNDROME [None]
